FAERS Safety Report 9552959 (Version 1)
Quarter: 2013Q3

REPORT INFORMATION
  Report Type: Spontaneous
  Country: US (occurrence: None)
  Receive Date: 20130924
  Receipt Date: 20130924
  Transmission Date: 20140515
  Serious: Yes (Hospitalization)
  Sender: FDA-Public Use
  Company Number: None

PATIENT
  Age: 70 Year
  Sex: Male
  Weight: 87.09 kg

DRUGS (1)
  1. NEURONTIN [Suspect]
     Indication: ANXIETY
     Route: 048
     Dates: start: 20130830, end: 20130920

REACTIONS (3)
  - Suicidal ideation [None]
  - Agitation [None]
  - Anxiety [None]
